FAERS Safety Report 5204687-5 (Version None)
Quarter: 2007Q1

REPORT INFORMATION
  Report Type: 
  Country: None (occurrence: None)
  Receive Date: 20070110
  Receipt Date: 20060615
  Transmission Date: 20070707
  Serious: No
  Sender: FDA-Public Use
  Company Number: US-BRISTOL-MYERS SQUIBB COMPANY-13413646

PATIENT
  Age: 32 Year
  Sex: Male

DRUGS (3)
  1. ABILIFY [Suspect]
     Indication: SCHIZOPHRENIA
     Dates: start: 20051010
  2. BUSPAR [Concomitant]
  3. COGENTIN [Concomitant]

REACTIONS (3)
  - MUSCLE TWITCHING [None]
  - RASH [None]
  - SKIN HYPERPIGMENTATION [None]
